FAERS Safety Report 5394687-7 (Version None)
Quarter: 2007Q3

REPORT INFORMATION
  Report Type: 
  Country: None (occurrence: None)
  Receive Date: 20070720
  Receipt Date: 20070619
  Transmission Date: 20080115
  Serious: Yes (Death)
  Sender: FDA-Public Use
  Company Number: POMP-11128

PATIENT
  Age: 14 Week
  Sex: Male
  Weight: 5.59 kg

DRUGS (1)
  1. MYOZYME [Suspect]
     Indication: GLYCOGEN STORAGE DISEASE TYPE II
     Dosage: 17.89 MG/KG Q2WKS IV
     Route: 042
     Dates: start: 20070607, end: 20070607

REACTIONS (1)
  - DEATH [None]
